FAERS Safety Report 4384014-6 (Version None)
Quarter: 2004Q2

REPORT INFORMATION
  Report Type: 
  Country: None (occurrence: None)
  Receive Date: 20040621
  Receipt Date: 20040603
  Transmission Date: 20050107
  Serious: Yes (Life-Threatening)
  Sender: FDA-Public Use
  Company Number: DSA_24529_2004

PATIENT
  Age: 63 Year
  Sex: Female

DRUGS (1)
  1. DILTIAZEM HCL [Suspect]
     Indication: HYPERTENSION
     Dosage: 300 MG QD PO
     Route: 048
     Dates: start: 20040406, end: 20040410

REACTIONS (1)
  - ANGIONEUROTIC OEDEMA [None]
